FAERS Safety Report 10027725 (Version 1)
Quarter: 2014Q1

REPORT INFORMATION
  Report Type: Spontaneous
  Country: US (occurrence: US)
  Receive Date: 20140321
  Receipt Date: 20140321
  Transmission Date: 20141002
  Serious: No
  Sender: FDA-Public Use
  Company Number: US-MALLINCKRODT-T201400040

PATIENT
  Age: 49 Year
  Sex: Female
  Weight: 78.46 kg

DRUGS (8)
  1. METHADONE [Suspect]
     Indication: PAIN
     Dosage: 10 MG, TID
     Route: 048
     Dates: start: 2012
  2. SYNTHROID [Concomitant]
     Indication: HYPOTHYROIDISM
     Dosage: UNK
  3. OXYCODONE [Concomitant]
     Indication: BREAKTHROUGH PAIN
     Dosage: 10 MG, PRN
     Route: 048
  4. HYDROCHLOROTHIAZIDE [Concomitant]
     Indication: HYPERTENSION
     Dosage: UNK
  5. DULERA [Concomitant]
     Indication: ASTHMA
     Dosage: UNK, PRN
  6. AMPHETAMINE [Concomitant]
     Dosage: 20 MG, UNK
  7. MONTELUKAST [Concomitant]
     Dosage: UNK
  8. DILTIAZEM CD [Concomitant]
     Indication: HYPERTENSION
     Dosage: UNK

REACTIONS (3)
  - Anxiety [Not Recovered/Not Resolved]
  - Nausea [Not Recovered/Not Resolved]
  - Dizziness [Not Recovered/Not Resolved]
